FAERS Safety Report 16770743 (Version 2)
Quarter: 2019Q3

REPORT INFORMATION
  Report Type: Spontaneous
  Country: FR (occurrence: FR)
  Receive Date: 20190904
  Receipt Date: 20190917
  Transmission Date: 20191005
  Serious: Yes (Disabling)
  Sender: FDA-Public Use
  Company Number: FR-TEVA-2019-FR-1102841

PATIENT
  Age: 40 Year
  Sex: Female

DRUGS (2)
  1. AZITHROMYCINE TEVA 250 MG [Suspect]
     Active Substance: AZITHROMYCIN DIHYDRATE
     Indication: OROPHARYNGEAL PAIN
     Route: 065
     Dates: start: 20190809, end: 20190812
  2. IMUREL [Concomitant]
     Active Substance: AZATHIOPRINE SODIUM
     Indication: CROHN^S DISEASE

REACTIONS (9)
  - Somnolence [Recovering/Resolving]
  - Eye pain [Recovering/Resolving]
  - Insomnia [Not Recovered/Not Resolved]
  - Headache [Recovering/Resolving]
  - Abdominal pain upper [Not Recovered/Not Resolved]
  - Dry eye [Not Recovered/Not Resolved]
  - Palpitations [Not Recovered/Not Resolved]
  - Eye paraesthesia [Not Recovered/Not Resolved]
  - Ocular discomfort [Recovering/Resolving]

NARRATIVE: CASE EVENT DATE: 20190809
